FAERS Safety Report 12086050 (Version 1)
Quarter: 2016Q1

REPORT INFORMATION
  Report Type: Spontaneous
  Country: US (occurrence: US)
  Receive Date: 20160217
  Receipt Date: 20160217
  Transmission Date: 20160526
  Serious: No
  Sender: FDA-Public Use
  Company Number: US-AQUA-2015AQU000070

PATIENT
  Age: 36 Year
  Sex: Male
  Weight: 97.51 kg

DRUGS (1)
  1. ACTICLATE [Suspect]
     Active Substance: DOXYCYCLINE HYCLATE
     Indication: INGROWN HAIR
     Dosage: 1 DF, QD
     Route: 048
     Dates: start: 20151105, end: 20151107

REACTIONS (4)
  - Glossodynia [Recovering/Resolving]
  - Product use issue [Recovered/Resolved]
  - Condition aggravated [Recovering/Resolving]
  - Product formulation issue [Not Recovered/Not Resolved]

NARRATIVE: CASE EVENT DATE: 20151105
